FAERS Safety Report 4713362-2 (Version None)
Quarter: 2005Q3

REPORT INFORMATION
  Report Type: 
  Country: None (occurrence: None)
  Receive Date: 20050706
  Receipt Date: 20050614
  Transmission Date: 20060218
  Serious: Yes (Hospitalization)
  Sender: FDA-Public Use
  Company Number: 200510289BFR

PATIENT
  Age: 67 Year
  Sex: Male

DRUGS (9)
  1. KOGENATE FS [Suspect]
     Indication: SURGERY
     Dosage: 3 KIU, TOTAL DAILY, INTRAVENOUS
     Route: 042
     Dates: start: 20041126, end: 20041213
  2. KOGENATE FS [Suspect]
  3. KOGENATE FS [Suspect]
  4. KOGENATE FS [Suspect]
  5. . [Concomitant]
  6. . [Concomitant]
  7. HELIXATE FS [Suspect]
     Indication: SURGERY
     Dosage: 2 KIU, TOTAL DAILY, INTRAVENOUS
     Route: 042
     Dates: start: 20041122
  8. HELIXATE FS [Suspect]
  9. HELIXATE FS [Suspect]
     Indication: SURGERY
     Dosage: 3 KIU, TOTAL DAILY, INTRAVENOUS
     Route: 042

REACTIONS (4)
  - ANTI FACTOR VIII ANTIBODY POSITIVE [None]
  - CHOLECYSTITIS [None]
  - DRUG INEFFECTIVE [None]
  - HAEMATOMA [None]
